FAERS Safety Report 16193861 (Version 2)
Quarter: 2020Q1

REPORT INFORMATION
  Report Type: Spontaneous
  Country: US (occurrence: US)
  Receive Date: 20190413
  Receipt Date: 20200310
  Transmission Date: 20200409
  Serious: No
  Sender: FDA-Public Use
  Company Number: US-009507513-1904USA004629

PATIENT
  Age: 40 Year
  Sex: Female

DRUGS (8)
  1. SINGULAIR [Concomitant]
     Active Substance: MONTELUKAST SODIUM
     Dosage: UNK
  2. XOPENEX [Suspect]
     Active Substance: LEVALBUTEROL HYDROCHLORIDE
     Dosage: UNK
     Dates: start: 20200221
  3. ASMANEX [Suspect]
     Active Substance: MOMETASONE FUROATE
     Dosage: UNK
     Dates: start: 202002
  4. ASMANEX [Suspect]
     Active Substance: MOMETASONE FUROATE
     Dosage: UNK
  5. ASMANEX [Suspect]
     Active Substance: MOMETASONE FUROATE
     Dosage: 220 MCG/ ONE PUFF / TWICE A DAY
     Dates: start: 20200210, end: 20200227
  6. ZYRTEC [Concomitant]
     Active Substance: CETIRIZINE HYDROCHLORIDE
     Dosage: UNK
  7. ASMANEX [Suspect]
     Active Substance: MOMETASONE FUROATE
     Indication: ASTHMA
     Dosage: UNK
     Dates: start: 2010
  8. ASMANEX [Suspect]
     Active Substance: MOMETASONE FUROATE
     Dosage: UNK

REACTIONS (8)
  - Product quality issue [Unknown]
  - Poor quality device used [Unknown]
  - Dyspnoea [Recovered/Resolved]
  - Poor quality device used [Unknown]
  - Pyrexia [Recovered/Resolved]
  - Ventricular extrasystoles [Not Recovered/Not Resolved]
  - Product quality issue [Unknown]
  - Chills [Recovered/Resolved]

NARRATIVE: CASE EVENT DATE: 20200221
